FAERS Safety Report 26124820 (Version 1)
Quarter: 2025Q4

REPORT INFORMATION
  Report Type: Spontaneous
  Country: EU (occurrence: EU)
  Receive Date: 20251205
  Receipt Date: 20251205
  Transmission Date: 20260118
  Serious: Yes (Life-Threatening, Hospitalization, Other)
  Sender: OCTAPHARMA
  Company Number: None

PATIENT
  Age: 94 Year
  Sex: Male
  Weight: 78 kg

DRUGS (2)
  1. OCTAPLAS LG [Suspect]
     Active Substance: PLASMA PROTEIN FRACTION (HUMAN)
     Indication: Hypocoagulable state
     Dosage: ADVERSE REACTIONS STARTED AFTER 3/4 OF INFUSION DOSE ADMINISTERED.
     Route: 042
     Dates: start: 20251117, end: 20251117
  2. APIXABAN [Concomitant]
     Active Substance: APIXABAN
     Indication: Product used for unknown indication

REACTIONS (7)
  - Delirium [Recovered/Resolved]
  - Erythema [Recovered/Resolved]
  - Altered state of consciousness [Recovered/Resolved]
  - Hypoxia [Recovered/Resolved]
  - Hypotension [Recovered/Resolved]
  - Eyelid oedema [Recovered/Resolved]
  - Bradycardia [Recovered/Resolved]

NARRATIVE: CASE EVENT DATE: 20251117
